FAERS Safety Report 26035744 (Version 1)
Quarter: 2025Q4

REPORT INFORMATION
  Report Type: Spontaneous
  Country: US (occurrence: None)
  Receive Date: 20251112
  Receipt Date: 20251112
  Transmission Date: 20260117
  Serious: Yes (Hospitalization)
  Sender: FDA-CTU
  Company Number: None

PATIENT
  Age: 14 Year
  Sex: Male

DRUGS (5)
  1. ELELYSO [Suspect]
     Active Substance: TALIGLUCERASE ALFA
     Indication: Gaucher^s disease
     Dosage: 4000 KIU KILO INTERNATIONAL UNIT(S) (1000S) EVERY 2 WEEKS INTRAVENOUS
     Route: 042
     Dates: start: 20241211
  2. SOD CHLOR POS STERILE F [Concomitant]
  3. STERILE WATER SDV [Concomitant]
  4. HEPARIN L/L FLUSH SYR) [Concomitant]
  5. SODIUM CHLORIDE [Concomitant]
     Active Substance: SODIUM CHLORIDE

REACTIONS (2)
  - Surgery [None]
  - Intentional dose omission [None]

NARRATIVE: CASE EVENT DATE: 20251029
